FAERS Safety Report 8385737 (Version 4)
Quarter: 2012Q4

REPORT INFORMATION
  Report Type: 
  Country: US (occurrence: US)
  Receive Date: 20120202
  Receipt Date: 20121218
  Transmission Date: 20130627
  Serious: Yes (Hospitalization)
  Sender: FDA-Public Use
  Company Number: US-GLAXOSMITHKLINE-A0963675A

PATIENT
  Age: 64 Year
  Sex: Male

DRUGS (1)
  1. NICODERM CQ [Suspect]
     Indication: SMOKING CESSATION THERAPY
     Route: 062
     Dates: start: 201109

REACTIONS (24)
  - Skin wound [Unknown]
  - Application site reaction [Not Recovered/Not Resolved]
  - Application site erosion [Not Recovered/Not Resolved]
  - Excoriation [Unknown]
  - Condition aggravated [Unknown]
  - Application site scar [Not Recovered/Not Resolved]
  - Drug administration error [Unknown]
  - Expired drug administered [Unknown]
  - Pain of skin [Unknown]
  - Thermal burn [Unknown]
  - Movement disorder [Unknown]
  - Laceration [Unknown]
  - Muscle atrophy [Unknown]
  - Skin tightness [Unknown]
  - Pain [Unknown]
  - Rash [Unknown]
  - Skin exfoliation [Unknown]
  - Blood disorder [Unknown]
  - Sleep disorder [Unknown]
  - Blister [Unknown]
  - Skin exfoliation [Unknown]
  - Erythema [Unknown]
  - Skin bacterial infection [Unknown]
  - Oedema [Unknown]
